FAERS Safety Report 15651547 (Version 2)
Quarter: 2018Q4

REPORT INFORMATION
  Report Type: Report from Study
  Country: CA (occurrence: CA)
  Receive Date: 20181123
  Receipt Date: 20181220
  Transmission Date: 20190205
  Serious: Yes (Death)
  Sender: FDA-Public Use
  Company Number: CA-TAIHO ONCOLOGY  INC-EU-2018-02154

PATIENT
  Age: 56 Year
  Sex: Male
  Weight: 101.5 kg

DRUGS (9)
  1. LONSURF [Suspect]
     Active Substance: TIPIRACIL HYDROCHLORIDE\TRIFLURIDINE
     Indication: COLORECTAL CANCER METASTATIC
     Dosage: CURRENT CYCLE UNKNOWN
     Route: 048
     Dates: start: 201809, end: 20181003
  2. VENLAFAXINE [Concomitant]
     Active Substance: VENLAFAXINE HYDROCHLORIDE
     Dosage: NI
  3. ALLOPURINOL. [Concomitant]
     Active Substance: ALLOPURINOL
     Dosage: NI
  4. PINDOLOL. [Concomitant]
     Active Substance: PINDOLOL
     Dosage: NI
  5. ROSUVASTATIN. [Concomitant]
     Active Substance: ROSUVASTATIN
     Dosage: NI
  6. TYLENOL [Concomitant]
     Active Substance: ACETAMINOPHEN
     Dosage: NI
  7. INSULIN DETEMIR [Concomitant]
     Active Substance: INSULIN DETEMIR
     Dosage: NI
  8. CA CITRATE VIT D [Concomitant]
     Dosage: NI
  9. MORPHINE [Concomitant]
     Active Substance: MORPHINE
     Dosage: NI

REACTIONS (2)
  - Colon cancer metastatic [Fatal]
  - Cardiopulmonary failure [Fatal]

NARRATIVE: CASE EVENT DATE: 20181020
